FAERS Safety Report 25259154 (Version 1)
Quarter: 2025Q2

REPORT INFORMATION
  Report Type: Spontaneous
  Country: US (occurrence: US)
  Receive Date: 20250501
  Receipt Date: 20250501
  Transmission Date: 20250717
  Serious: Yes (Other)
  Sender: AUROBINDO
  Company Number: US-AUROBINDO-AUR-APL-2024-019800

PATIENT
  Age: 13 Month

DRUGS (6)
  1. KETAMINE HYDROCHLORIDE [Suspect]
     Active Substance: KETAMINE HYDROCHLORIDE
     Indication: Seizure
     Route: 065
  2. LORAZEPAM [Suspect]
     Active Substance: LORAZEPAM
     Indication: Seizure
     Route: 065
  3. FOSPHENYTOIN [Suspect]
     Active Substance: FOSPHENYTOIN
     Indication: Seizure
     Route: 042
  4. PHENOBARBITAL [Suspect]
     Active Substance: PHENOBARBITAL
     Indication: Seizure
     Route: 042
  5. MIDAZOLAM [Suspect]
     Active Substance: MIDAZOLAM
     Indication: Seizure
     Route: 065
  6. PENTOBARBITAL [Suspect]
     Active Substance: PENTOBARBITAL
     Indication: Seizure
     Route: 065

REACTIONS (1)
  - Drug ineffective [Unknown]
